FAERS Safety Report 13561762 (Version 5)
Quarter: 2018Q3

REPORT INFORMATION
  Report Type: Spontaneous
  Country: US (occurrence: US)
  Receive Date: 20170518
  Receipt Date: 20180702
  Transmission Date: 20181010
  Serious: Yes (Other)
  Sender: FDA-Public Use
  Company Number: US-TEVA-765813ACC

PATIENT
  Age: 41 Year
  Sex: Female

DRUGS (12)
  1. XENAZINE [Suspect]
     Active Substance: TETRABENAZINE
     Indication: MULTIPLE SCLEROSIS
     Dosage: 225 MILLIGRAM DAILY;
     Route: 048
     Dates: start: 20161217
  2. RISPERIDONE. [Concomitant]
     Active Substance: RISPERIDONE
  3. VITAMIN E [Concomitant]
     Active Substance: .ALPHA.-TOCOPHEROL
  4. VITAMIN C [Concomitant]
     Active Substance: ASCORBIC ACID
  5. VITAM [Concomitant]
  6. PREDNISONE. [Concomitant]
     Active Substance: PREDNISONE
  7. XANAX [Concomitant]
     Active Substance: ALPRAZOLAM
  8. ALBUTEIN [Concomitant]
     Active Substance: ALBUMIN HUMAN
  9. VITAMIN D3 [Concomitant]
     Active Substance: CHOLECALCIFEROL
  10. CITALOPRAM [Concomitant]
     Active Substance: CITALOPRAM HYDROBROMIDE
  11. COPAXONE [Suspect]
     Active Substance: GLATIRAMER ACETATE
     Indication: MULTIPLE SCLEROSIS
     Route: 058
     Dates: start: 20170314
  12. MULTI?VITAMIN [Concomitant]
     Active Substance: .ALPHA.-TOCOPHEROL ACETATE, DL-\ASCORBIC ACID\CYANOCOBALAMIN\FLUORIDE ION\FOLIC ACID\NIACIN\PYRIDOXINE\RIBOFLAVIN\THIAMINE\VITAMIN A\VITAMIN D

REACTIONS (9)
  - Anal incontinence [Not Recovered/Not Resolved]
  - Urinary incontinence [Not Recovered/Not Resolved]
  - Fall [Not Recovered/Not Resolved]
  - Gait inability [Not Recovered/Not Resolved]
  - Injection site pruritus [Not Recovered/Not Resolved]
  - Injection site rash [Not Recovered/Not Resolved]
  - Aphasia [Not Recovered/Not Resolved]
  - Injection site erythema [Not Recovered/Not Resolved]
  - Vomiting [Not Recovered/Not Resolved]

NARRATIVE: CASE EVENT DATE: 20180531
